FAERS Safety Report 23307945 (Version 1)
Quarter: 2023Q4

REPORT INFORMATION
  Report Type: Spontaneous
  Country: GB (occurrence: GB)
  Receive Date: 20231218
  Receipt Date: 20231218
  Transmission Date: 20240110
  Serious: Yes (Life-Threatening, Other)
  Sender: FDA-Public Use
  Company Number: None

PATIENT
  Age: 69 Year
  Weight: 93 kg

DRUGS (10)
  1. TAMOXIFEN [Suspect]
     Active Substance: TAMOXIFEN
     Indication: Product used for unknown indication
     Dosage: ONE TO BE TAKEN EACH DAY
     Route: 065
     Dates: start: 20181228, end: 20231129
  2. AMLODIPINE [Concomitant]
     Active Substance: AMLODIPINE BESYLATE
     Indication: Joint swelling
     Dosage: ONE TO BE TAKEN EACH DAY
     Dates: start: 20230912
  3. APIXABAN [Concomitant]
     Active Substance: APIXABAN
     Indication: Deep vein thrombosis
     Dosage: ONE TO BE TAKEN TWICE A DAY FOR 3 MONTHS ,STOP END OF FEBRUARY
     Dates: start: 20231127
  4. PIROXICAM [Concomitant]
     Active Substance: PIROXICAM
     Indication: Dizziness
     Dosage: APPLY THREE OR FOUR TIMES A DAY
     Dates: start: 20231113
  5. BETAHISTINE [Concomitant]
     Active Substance: BETAHISTINE
     Indication: Dizziness
     Dosage: TIME INTERVAL: 0.33333333 DAYS: ONE TO BE TAKEN THREE TIMES A DAY
     Dates: start: 20231113
  6. INDAPAMIDE [Concomitant]
     Active Substance: INDAPAMIDE
     Indication: Joint swelling
     Dosage: ONE TO BE TAKEN DAILY
     Dates: start: 20230912
  7. FUSIDIC ACID [Concomitant]
     Active Substance: FUSIDIC ACID
     Indication: Dizziness
     Dosage: TIME INTERVAL: 0.33333333 DAYS: APPLY THREE TIMES A DAY
     Dates: start: 20231113
  8. COCODAMOL [Concomitant]
     Active Substance: ACETAMINOPHEN\CODEINE PHOSPHATE
     Indication: Deep vein thrombosis
     Dosage: ONE TO BE TAKEN FOUR TIMES A DAY
     Dates: start: 20231127
  9. COCODAMOL [Concomitant]
     Active Substance: ACETAMINOPHEN\CODEINE PHOSPHATE
     Indication: Deep vein thrombosis
     Dosage: ONE TO BE TAKEN FOUR TIMES A DAY
     Dates: start: 20231009, end: 20231118
  10. GABAPENTIN [Concomitant]
     Active Substance: GABAPENTIN
     Indication: Joint swelling
     Dosage: ONE CAP AT EVENING
     Dates: start: 20230912, end: 20231011

REACTIONS (1)
  - Deep vein thrombosis [Recovering/Resolving]

NARRATIVE: CASE EVENT DATE: 20231116
